FAERS Safety Report 11397418 (Version 1)
Quarter: 2015Q3

REPORT INFORMATION
  Report Type: Spontaneous
  Country: US (occurrence: US)
  Receive Date: 20150819
  Receipt Date: 20150819
  Transmission Date: 20151125
  Serious: Yes (Other)
  Sender: FDA-Public Use
  Company Number: US-BAYER-2015-403346

PATIENT
  Age: 66 Year
  Sex: Male

DRUGS (3)
  1. ALEVE [Interacting]
     Active Substance: NAPROXEN SODIUM
     Indication: PAIN
  2. ORLISTAT [Suspect]
     Active Substance: ORLISTAT
     Indication: WEIGHT LOSS DIET
     Dosage: UNK
     Route: 048
     Dates: start: 2015, end: 20150522
  3. ADVIL [Interacting]
     Active Substance: IBUPROFEN
     Indication: PAIN

REACTIONS (4)
  - Haematochezia [Not Recovered/Not Resolved]
  - Abdominal pain upper [Not Recovered/Not Resolved]
  - Labelled drug-drug interaction medication error [None]
  - Gastric ulcer haemorrhage [Not Recovered/Not Resolved]
